FAERS Safety Report 7137971-9 (Version None)
Quarter: 2010Q4

REPORT INFORMATION
  Report Type: 
  Country: None (occurrence: None)
  Receive Date: 20101103
  Receipt Date: 20100311
  Transmission Date: 20110411
  Serious: Yes (Other)
  Sender: FDA-Public Use
  Company Number: US-WYE-H14058010

PATIENT
  Age: 40 Year
  Sex: Female
  Weight: 54.48 kg

DRUGS (3)
  1. EFFEXOR XR [Suspect]
     Indication: DEPRESSION
     Dosage: TAPERED OFF, ORAL ; 225 MG 1X PER 1 DAY, ORAL
     Route: 048
     Dates: start: 20020101, end: 20040101
  2. EFFEXOR XR [Suspect]
     Indication: DEPRESSION
     Dosage: TAPERED OFF, ORAL ; 225 MG 1X PER 1 DAY, ORAL
     Route: 048
     Dates: start: 20040101
  3. ATIVAN [Concomitant]

REACTIONS (4)
  - ABNORMAL BEHAVIOUR [None]
  - AGGRESSION [None]
  - ANGER [None]
  - IRRITABILITY [None]
